FAERS Safety Report 4335845-X (Version None)
Quarter: 2004Q2

REPORT INFORMATION
  Report Type: 
  Country: None (occurrence: None)
  Receive Date: 20040409
  Receipt Date: 20040405
  Transmission Date: 20050107
  Serious: Yes (Life-Threatening)
  Sender: FDA-Public Use
  Company Number: PHFR2004GB01656

PATIENT
  Age: 59 Year
  Sex: Male
  Weight: 77 kg

DRUGS (4)
  1. ZOMETA [Suspect]
     Indication: PROSTATE CANCER
     Dosage: 4 MG/DAY
     Route: 042
     Dates: start: 20000807
  2. BICALUTAMIDE [Concomitant]
     Indication: PROSTATE CANCER
     Dosage: 50 MG/DAY
     Route: 048
     Dates: start: 20020619
  3. DIHYDROCODEINE [Concomitant]
     Indication: MYOSITIS
     Dosage: 30 MG/DAY
     Route: 048
     Dates: start: 19980101
  4. CALCIUM [Concomitant]
     Dosage: 400-500 IU
     Route: 048
     Dates: start: 20000817

REACTIONS (1)
  - MYOCARDIAL INFARCTION [None]
